FAERS Safety Report 19834780 (Version 3)
Quarter: 2022Q2

REPORT INFORMATION
  Report Type: Report from Study
  Country: NL (occurrence: NL)
  Receive Date: 20210914
  Receipt Date: 20220425
  Transmission Date: 20220721
  Serious: Yes (Hospitalization)
  Sender: FDA-Public Use
  Company Number: NL-OTSUKA-2021_031294

PATIENT
  Age: 8 Decade
  Sex: Female

DRUGS (1)
  1. DECITABINE [Suspect]
     Active Substance: DECITABINE
     Indication: Acute myeloid leukaemia
     Dosage: THE SUBJECT RECEIVED LAST DOSE OF DECITABINE BEFORE ONSET OF EVENT ON 29-AUG-2021 (35 MG)
     Route: 042
     Dates: start: 20210820, end: 20210920

REACTIONS (1)
  - Myopericarditis [Not Recovered/Not Resolved]

NARRATIVE: CASE EVENT DATE: 20210830
